FAERS Safety Report 24648384 (Version 1)
Quarter: 2024Q4

REPORT INFORMATION
  Report Type: Spontaneous
  Country: US (occurrence: US)
  Receive Date: 20241121
  Receipt Date: 20241121
  Transmission Date: 20250114
  Serious: No
  Sender: DR REDDYS
  Company Number: US-DRL-USA-SPO/USA/24/0016740

PATIENT
  Age: 29 Year
  Sex: Female

DRUGS (1)
  1. OMEPRAZOLE [Suspect]
     Active Substance: OMEPRAZOLE
     Indication: Gastrooesophageal reflux disease
     Dosage: 20 MG OTC, 42 COUNT
     Route: 065
     Dates: start: 20241106, end: 20241108

REACTIONS (3)
  - Product physical issue [Unknown]
  - Product quality issue [Unknown]
  - Product dose omission issue [Unknown]
